FAERS Safety Report 5911937-6 (Version None)
Quarter: 2008Q4

REPORT INFORMATION
  Report Type: 
  Country: None (occurrence: None)
  Receive Date: 20081008
  Receipt Date: 20080929
  Transmission Date: 20090506
  Serious: Yes (Other)
  Sender: FDA-Public Use
  Company Number: PHHY2008AU15722

PATIENT
  Age: 50 Year
  Sex: Female

DRUGS (4)
  1. VOLTAREN [Suspect]
     Indication: ANALGESIA
     Dosage: UNK
     Route: 067
     Dates: start: 20080203
  2. MS CONTIN [Concomitant]
     Indication: ANALGESIA
     Dosage: 100MG
     Route: 048
     Dates: start: 20070921
  3. ALODORM [Concomitant]
     Indication: INSOMNIA
     Dosage: 5MG
     Route: 048
     Dates: start: 20071004
  4. MIRTAZAPINE [Concomitant]
     Dosage: 30MG
     Route: 048
     Dates: start: 20071004

REACTIONS (4)
  - CHROMATURIA [None]
  - DYSURIA [None]
  - INCORRECT ROUTE OF DRUG ADMINISTRATION [None]
  - URINARY RETENTION [None]
